FAERS Safety Report 21237315 (Version 2)
Quarter: 2022Q4

REPORT INFORMATION
  Report Type: Spontaneous
  Country: US (occurrence: US)
  Receive Date: 20220822
  Receipt Date: 20221019
  Transmission Date: 20230113
  Serious: No
  Sender: FDA-Public Use
  Company Number: US-PFIZER INC-202201048264

PATIENT
  Age: 28 Month
  Sex: Male
  Weight: 8.447 kg

DRUGS (1)
  1. GENOTROPIN [Suspect]
     Active Substance: SOMATROPIN
     Dosage: 0.3 MG

REACTIONS (6)
  - Incorrect dose administered by device [Unknown]
  - Product storage error [Unknown]
  - Device physical property issue [Unknown]
  - Device leakage [Unknown]
  - Device defective [Unknown]
  - Device information output issue [Unknown]
